FAERS Safety Report 7425698-5 (Version None)
Quarter: 2011Q2

REPORT INFORMATION
  Report Type: 
  Country: None (occurrence: None)
  Receive Date: 20110420
  Receipt Date: 20110406
  Transmission Date: 20111010
  Serious: Yes (Other)
  Sender: FDA-Public Use
  Company Number: US-ELI_LILLY_AND_COMPANY-US201010005703

PATIENT
  Sex: Female

DRUGS (5)
  1. FORTEO [Suspect]
     Indication: OSTEOPOROSIS
     Dosage: 20 UG, DAILY (1/D)
     Dates: start: 20100801
  2. FORTEO [Suspect]
     Dosage: 20 UG, DAILY (1/D)
  3. NEURONTIN [Concomitant]
  4. FORTEO [Suspect]
     Dosage: 20 UG, DAILY (1/D)
  5. FORTEO [Suspect]
     Dosage: 20 UG, QD

REACTIONS (10)
  - BACK DISORDER [None]
  - BALANCE DISORDER [None]
  - ABDOMINAL DISCOMFORT [None]
  - HEADACHE [None]
  - DIZZINESS [None]
  - INJECTION SITE HAEMATOMA [None]
  - INJECTION SITE ERYTHEMA [None]
  - MIDDLE INSOMNIA [None]
  - DRUG DOSE OMISSION [None]
  - ABDOMINAL PAIN [None]
